FAERS Safety Report 25899085 (Version 2)
Quarter: 2025Q4

REPORT INFORMATION
  Report Type: Spontaneous
  Country: US (occurrence: US)
  Receive Date: 20251009
  Receipt Date: 20251028
  Transmission Date: 20260118
  Serious: Yes (Other)
  Sender: TEVA
  Company Number: US-TEVA-VS-3377800

PATIENT
  Age: 46 Year
  Sex: Female

DRUGS (6)
  1. PREDNISONE [Suspect]
     Active Substance: PREDNISONE
     Indication: Erdheim-Chester disease
     Route: 065
  2. TACROLIMUS [Suspect]
     Active Substance: TACROLIMUS
     Indication: Erdheim-Chester disease
     Route: 061
  3. KOJIC ACID (KOJIC ACID) [Suspect]
     Active Substance: KOJIC ACID
     Indication: Erdheim-Chester disease
     Dosage: 6%
     Route: 065
  4. HYDROQUINONE [Suspect]
     Active Substance: HYDROQUINONE
     Indication: Erdheim-Chester disease
     Dosage: 12%
     Route: 065
  5. COBIMETINIB [Suspect]
     Active Substance: COBIMETINIB
     Indication: Erdheim-Chester disease
     Route: 048
  6. ASCORBIC ACID [Suspect]
     Active Substance: ASCORBIC ACID
     Indication: Erdheim-Chester disease
     Dosage: VITAMIN C 5%
     Route: 065

REACTIONS (6)
  - Cognitive disorder [Unknown]
  - Arthralgia [Unknown]
  - Premature ageing [Unknown]
  - Fatigue [Unknown]
  - Drug ineffective [Unknown]
  - Diarrhoea [Unknown]
